FAERS Safety Report 4919117-8 (Version None)
Quarter: 2006Q1

REPORT INFORMATION
  Report Type: 
  Country: None (occurrence: None)
  Receive Date: 20060222
  Receipt Date: 20060210
  Transmission Date: 20060701
  Serious: Yes (Hospitalization)
  Sender: FDA-Public Use
  Company Number: FR-SANOFI-SYNTHELABO-A02200600384

PATIENT
  Age: 75 Year
  Sex: Male

DRUGS (5)
  1. PLAVIX [Suspect]
     Indication: PROPHYLAXIS
     Dosage: UNK
     Route: 048
  2. DIALGIREX [Suspect]
     Indication: ARTHRALGIA
     Dosage: UNK
     Route: 048
  3. SOTALOL HCL [Suspect]
     Indication: ARRHYTHMIA
     Dosage: UNK
     Route: 048
  4. OMEPRAZOLE [Suspect]
     Indication: OESOPHAGITIS
     Dosage: UNK
     Route: 048
  5. ELISOR [Suspect]
     Indication: HYPERCHOLESTEROLAEMIA
     Dosage: UNK
     Route: 048

REACTIONS (2)
  - MYCOSIS FUNGOIDES [None]
  - PSEUDO LYMPHOMA [None]
